FAERS Safety Report 8893881 (Version 1)
Quarter: 2012Q4

REPORT INFORMATION
  Report Type: 
  Country: US (occurrence: US)
  Receive Date: 20121107
  Receipt Date: 20121107
  Transmission Date: 20130627
  Serious: Yes (Death)
  Sender: FDA-Public Use
  Company Number: CHPA2012US023012

PATIENT
  Age: 73 Year
  Sex: Male

DRUGS (2)
  1. MAALOX ANTACID/ANTIGAS MAX QDTABS ASST [Suspect]
     Indication: GASTRIC DISORDER
     Dosage: Unk, Unk
     Dates: start: 1976, end: 1988
  2. MAALOX ANTACID/ANTIGAS MAX LIQ UNKNOWN [Suspect]
     Indication: GASTRIC DISORDER
     Dosage: Unk, Unk
     Route: 048
     Dates: start: 1976, end: 1988

REACTIONS (2)
  - Death [Fatal]
  - Off label use [Unknown]
